FAERS Safety Report 5704168-6 (Version None)
Quarter: 2008Q2

REPORT INFORMATION
  Report Type: 
  Country: None (occurrence: None)
  Receive Date: 20080409
  Receipt Date: 20080401
  Transmission Date: 20081010
  Serious: Yes (Life-Threatening, Hospitalization)
  Sender: FDA-Public Use
  Company Number: OSCN-GE-0804S-0185

PATIENT
  Age: 68 Year
  Sex: Male
  Weight: 87 kg

DRUGS (5)
  1. OMNISCAN [Suspect]
     Indication: ARACHNOID CYST
     Dosage: 20 ML, SINGLE DOSE, I.V.
     Route: 042
     Dates: start: 20071003, end: 20071003
  2. OMNISCAN [Suspect]
     Indication: ARACHNOID CYST
     Dosage: 20 ML, SINGLE DOSE, I.V.
     Route: 042
     Dates: start: 20071015, end: 20071015
  3. ACETYLSALICYCLIC ACID (ASS) [Concomitant]
  4. CLOPIDOGREL [Concomitant]
  5. ANTIBIOTICS (UNSPECIFIED) [Concomitant]

REACTIONS (3)
  - BLOOD CREATININE INCREASED [None]
  - PYREXIA [None]
  - THROMBOCYTOPENIA [None]
